FAERS Safety Report 4319427-1 (Version None)
Quarter: 2004Q1

REPORT INFORMATION
  Report Type: 
  Country: None (occurrence: None)
  Receive Date: 20040319
  Receipt Date: 20040311
  Transmission Date: 20041129
  Serious: Yes (Other)
  Sender: FDA-Public Use
  Company Number: FR-ROCHE-361497

PATIENT
  Sex: Male

DRUGS (1)
  1. APRANAX [Suspect]
     Indication: DRUG USE FOR UNKNOWN INDICATION
     Dosage: THREE TABLETS TWO DAYS BEFORE OPERATION AND THREE TABLETS THE DAY BEFORE OPERATION.
     Route: 065
     Dates: start: 20001015, end: 20001015

REACTIONS (3)
  - HAEMORRHAGE [None]
  - OPERATIVE HAEMORRHAGE [None]
  - POST PROCEDURAL HAEMORRHAGE [None]
